FAERS Safety Report 22277453 (Version 1)
Quarter: 2023Q2

REPORT INFORMATION
  Report Type: Report from Study
  Country: CA (occurrence: CA)
  Receive Date: 20230503
  Receipt Date: 20230503
  Transmission Date: 20230722
  Serious: Yes (Other)
  Sender: FDA-Public Use
  Company Number: CA-CELLTRION INC.-2023CA009155

PATIENT

DRUGS (3)
  1. TRUXIMA [Suspect]
     Active Substance: RITUXIMAB-ABBS
     Indication: Cold type haemolytic anaemia
     Dosage: 375 MG/M2 (620 MG IV WEEKLY X 4 WEEKS = 2480 MG)
     Route: 042
  2. TRUXIMA [Suspect]
     Active Substance: RITUXIMAB-ABBS
     Indication: Retinal vein occlusion
  3. TRUXIMA [Suspect]
     Active Substance: RITUXIMAB-ABBS
     Indication: Blindness

REACTIONS (4)
  - Cold type haemolytic anaemia [Unknown]
  - Retinal vein occlusion [Unknown]
  - Blindness [Unknown]
  - Off label use [Unknown]
